FAERS Safety Report 16347995 (Version 1)
Quarter: 2019Q2

REPORT INFORMATION
  Report Type: Spontaneous
  Country: US (occurrence: US)
  Receive Date: 20190523
  Receipt Date: 20190523
  Transmission Date: 20190711
  Serious: Yes (Other)
  Sender: FDA-Public Use
  Company Number: US-IGSA-SR10007489

PATIENT
  Age: 70 Year
  Sex: Female
  Weight: 61 kg

DRUGS (14)
  1. GAMUNEX-C [Suspect]
     Active Substance: HUMAN IMMUNOGLOBULIN G
     Dosage: 5 G, UNK
     Route: 042
     Dates: start: 20181119, end: 20181120
  2. MELATONIN [Concomitant]
     Active Substance: MELATONIN
     Dosage: 10 MG, UNK
     Route: 048
  3. CIPROFLOXACIN HCL [Concomitant]
     Active Substance: CIPROFLOXACIN HYDROCHLORIDE
     Dosage: UNK UNK, TID
     Route: 047
  4. PAROXETINE HCL [Concomitant]
     Active Substance: PAROXETINE HYDROCHLORIDE
     Dosage: 25 MG, QD
     Route: 048
  5. BIOTIN [Concomitant]
     Active Substance: BIOTIN
     Dosage: 1000 ?G, UNK
     Route: 048
  6. MULTIVITAMIN                       /00097801/ [Concomitant]
     Active Substance: VITAMINS
     Dosage: UNK UNK, QD
     Route: 048
  7. ESSENTIAL OILS NOS [Concomitant]
     Dosage: UNK
  8. GAMUNEX-C [Suspect]
     Active Substance: HUMAN IMMUNOGLOBULIN G
     Indication: POLYNEUROPATHY
     Dosage: 20 G, UNK
     Route: 042
     Dates: start: 20181119, end: 20181120
  9. CLONAZEPAM. [Concomitant]
     Active Substance: CLONAZEPAM
     Dosage: 1 MG, UNK
     Route: 048
  10. CALCIUM D3                         /00944201/ [Concomitant]
     Active Substance: CALCIUM CARBONATE\CHOLECALCIFEROL
     Dosage: UNK UNK, QD
     Route: 048
  11. CO Q 10                            /00517201/ [Concomitant]
     Dosage: 100 MG, QD
     Route: 048
  12. ASPIRIN 81 [Concomitant]
     Active Substance: ASPIRIN
     Dosage: 81 MG, QD
     Route: 048
  13. PREDNISOLONE ACETATE. [Concomitant]
     Active Substance: PREDNISOLONE ACETATE
     Dosage: UNK UNK, TID
     Route: 047
  14. KETOROLAC TROMETHAMINE. [Concomitant]
     Active Substance: KETOROLAC TROMETHAMINE
     Dosage: UNK UNK, TID
     Route: 047

REACTIONS (1)
  - Rash pruritic [Recovered/Resolved]

NARRATIVE: CASE EVENT DATE: 20181119
